FAERS Safety Report 25045977 (Version 1)
Quarter: 2025Q1

REPORT INFORMATION
  Report Type: Spontaneous
  Country: JP (occurrence: JP)
  Receive Date: 20250306
  Receipt Date: 20250306
  Transmission Date: 20250409
  Serious: Yes (Life-Threatening, Hospitalization, Other)
  Sender: MERZ
  Company Number: JP-MRZWEB-2025020000198

PATIENT

DRUGS (5)
  1. XEOMIN [Suspect]
     Active Substance: INCOBOTULINUMTOXINA
     Indication: Hypotonia
  2. XEOMIN [Suspect]
     Active Substance: INCOBOTULINUMTOXINA
     Indication: Muscle spasticity
  3. BOTOX [Suspect]
     Active Substance: ONABOTULINUMTOXINA
     Indication: Hypotonia
  4. BOTOX [Suspect]
     Active Substance: ONABOTULINUMTOXINA
     Indication: Muscle spasticity
  5. TIZANIDINE [Concomitant]
     Active Substance: TIZANIDINE

REACTIONS (8)
  - Paralysis [Unknown]
  - Carotid artery occlusion [Unknown]
  - Cerebral infarction [Unknown]
  - Altered state of consciousness [Unknown]
  - Cerebral artery occlusion [Unknown]
  - Aphasia [Unknown]
  - Prescribed overdose [Unknown]
  - Off label use [Unknown]

NARRATIVE: CASE EVENT DATE: 20240224
